FAERS Safety Report 5408365-9 (Version None)
Quarter: 2007Q3

REPORT INFORMATION
  Report Type: 
  Country: None (occurrence: None)
  Receive Date: 20070803
  Receipt Date: 20070705
  Transmission Date: 20080115
  Serious: Yes (Death)
  Sender: FDA-Public Use
  Company Number: 2006RR-02737

PATIENT
  Age: 40 Year
  Sex: Male
  Weight: 102 kg

DRUGS (5)
  1. FLUOXETINE [Suspect]
     Indication: MAJOR DEPRESSION
     Dosage: 60 MG, ORAL
     Route: 048
     Dates: start: 20040401
  2. ZYPREXA [Suspect]
     Indication: PSYCHOTIC DISORDER
     Dosage: 20 MG, ORAL
     Route: 048
     Dates: start: 20040401
  3. DIAZEPAM [Concomitant]
  4. TEMAZEPAM [Concomitant]
  5. MIRTAZAPINE [Concomitant]

REACTIONS (6)
  - COUGH [None]
  - DEPRESSED LEVEL OF CONSCIOUSNESS [None]
  - DRUG LEVEL INCREASED [None]
  - RESPIRATORY DEPRESSION [None]
  - SNEEZING [None]
  - SUDDEN DEATH [None]
